FAERS Safety Report 18231835 (Version 1)
Quarter: 2020Q3

REPORT INFORMATION
  Report Type: Spontaneous
  Country: FR (occurrence: FR)
  Receive Date: 20200904
  Receipt Date: 20200904
  Transmission Date: 20201103
  Serious: Yes (Hospitalization)
  Sender: FDA-Public Use
  Company Number: FR-ACCORD-199048

PATIENT
  Age: 29 Year
  Sex: Female
  Weight: 66 kg

DRUGS (5)
  1. IRINOTECAN ACCORD [Suspect]
     Active Substance: IRINOTECAN
     Indication: ASTROCYTOMA
     Route: 041
     Dates: start: 20200225, end: 20200225
  2. ATROPINE. [Concomitant]
     Active Substance: ATROPINE
     Indication: PREMEDICATION
     Route: 058
     Dates: start: 20200225, end: 20200225
  3. ONDANSETRON ACCORD [Concomitant]
     Active Substance: ONDANSETRON
     Indication: PREMEDICATION
     Route: 042
     Dates: start: 20200225, end: 20200225
  4. AVASTIN [Concomitant]
     Active Substance: BEVACIZUMAB
     Indication: ASTROCYTOMA
     Route: 041
     Dates: start: 20200225, end: 20200225
  5. METHYLPREDNISOLONE MERCK [Concomitant]
     Active Substance: METHYLPREDNISOLONE
     Indication: PREMEDICATION
     Route: 042
     Dates: start: 20200225, end: 20200225

REACTIONS (3)
  - Diarrhoea [Recovered/Resolved]
  - Abdominal pain [Recovered/Resolved]
  - Infusion related reaction [Recovered/Resolved]

NARRATIVE: CASE EVENT DATE: 20200225
